FAERS Safety Report 11284110 (Version 1)
Quarter: 2015Q3

REPORT INFORMATION
  Report Type: Spontaneous
  Country: US (occurrence: US)
  Receive Date: 20150720
  Receipt Date: 20150720
  Transmission Date: 20151125
  Serious: No
  Sender: FDA-Public Use
  Company Number: US-BAUSCH-BL-2015-002206

PATIENT
  Sex: Female

DRUGS (8)
  1. LACRISERT [Suspect]
     Active Substance: HYDROXYPROPYL CELLULOSE
     Indication: DRY EYE
     Route: 047
  2. TACROLIMUS. [Concomitant]
     Active Substance: TACROLIMUS
  3. FISH OIL [Concomitant]
     Active Substance: FISH OIL
     Indication: DRY EYE
  4. TACROLIMUS. [Concomitant]
     Active Substance: TACROLIMUS
     Indication: DRY EYE
  5. PREDNISONE. [Concomitant]
     Active Substance: PREDNISONE
     Indication: DRY EYE
  6. RESTASIS [Concomitant]
     Active Substance: CYCLOSPORINE
     Indication: DRY EYE
  7. VALACYCLOVIR [Concomitant]
     Active Substance: VALACYCLOVIR HYDROCHLORIDE
     Indication: DRY EYE
  8. MULTIVITAMIN [Concomitant]
     Active Substance: VITAMINS
     Indication: DRY EYE

REACTIONS (3)
  - Product size issue [Unknown]
  - Eye discharge [Recovered/Resolved]
  - Drug ineffective [Not Recovered/Not Resolved]
